FAERS Safety Report 5394756-1 (Version None)
Quarter: 2007Q3

REPORT INFORMATION
  Report Type: 
  Country: None (occurrence: None)
  Receive Date: 20070723
  Receipt Date: 20070711
  Transmission Date: 20080115
  Serious: Yes (Death)
  Sender: FDA-Public Use
  Company Number: JP-PFIZER INC-2007056757

PATIENT
  Age: 59 Year
  Sex: Male

DRUGS (3)
  1. VORICONAZOLE [Suspect]
     Indication: BRONCHOPULMONARY ASPERGILLOSIS
  2. MICAFUNGIN [Concomitant]
  3. AMPHOTERICIN B [Concomitant]

REACTIONS (1)
  - MUCORMYCOSIS [None]
